FAERS Safety Report 4411720-7 (Version None)
Quarter: 2004Q3

REPORT INFORMATION
  Report Type: 
  Country: None (occurrence: None)
  Receive Date: 20040728
  Receipt Date: 20040715
  Transmission Date: 20050211
  Serious: Yes (Hospitalization, Other)
  Sender: FDA-Public Use
  Company Number: ENTC2004-0138 (0)

PATIENT
  Age: 83 Year
  Sex: Male
  Weight: 81.63 kg

DRUGS (4)
  1. STALEVO 100 [Suspect]
     Indication: PARKINSON'S DISEASE
     Dosage: THREE TIMES A DAY, ORAL
     Route: 048
     Dates: start: 20031001
  2. ALLOPURINOL [Concomitant]
  3. PLAVIX [Concomitant]
  4. MULTI-VITAMINS [Concomitant]

REACTIONS (3)
  - CARDIAC FAILURE CONGESTIVE [None]
  - HALLUCINATION [None]
  - PARANOIA [None]
